FAERS Safety Report 5287681-8 (Version None)
Quarter: 2007Q1

REPORT INFORMATION
  Report Type: 
  Country: None (occurrence: None)
  Receive Date: 20070105
  Receipt Date: 20061107
  Transmission Date: 20070707
  Serious: Yes (Other)
  Sender: FDA-Public Use
  Company Number: US-JNJFOC-20061101969

PATIENT
  Age: 38 Year
  Sex: Male
  Weight: 72.5755 kg

DRUGS (1)
  1. ULTRAM ER [Suspect]
     Indication: INFLAMMATION
     Dosage: 100 MG, 1 IN 1 DAY, ORAL
     Route: 048
     Dates: start: 20061102, end: 20061103

REACTIONS (1)
  - MALAISE [None]
